FAERS Safety Report 17667231 (Version 1)
Quarter: 2020Q2

REPORT INFORMATION
  Report Type: Report from Study
  Country: None (occurrence: US)
  Receive Date: 20200414
  Receipt Date: 20200414
  Transmission Date: 20200713
  Serious: Yes (Hospitalization, Other)
  Sender: FDA-Public Use
  Company Number: US-ABBVIE-20P-163-3361374-00

PATIENT
  Sex: Male

DRUGS (1)
  1. IMBRUVICA [Suspect]
     Active Substance: IBRUTINIB
     Indication: CHRONIC LYMPHOCYTIC LEUKAEMIA
     Route: 048
     Dates: start: 20191022

REACTIONS (6)
  - Anxiety [Unknown]
  - Hospitalisation [Unknown]
  - Asthenia [Unknown]
  - Cerebrovascular accident [Unknown]
  - Hemiplegia [Unknown]
  - Blood pressure abnormal [Unknown]
